FAERS Safety Report 20687422 (Version 1)
Quarter: 2022Q2

REPORT INFORMATION
  Report Type: Spontaneous
  Country: HR (occurrence: HR)
  Receive Date: 20220408
  Receipt Date: 20220408
  Transmission Date: 20220720
  Serious: Yes (Other)
  Sender: FDA-Public Use
  Company Number: None

PATIENT
  Age: 30 Year
  Sex: Female

DRUGS (3)
  1. ARIPIPRAZOLE [Suspect]
     Active Substance: ARIPIPRAZOLE
     Dosage: UNIT DOSE: 90 MG, FREQUENCY TIME 1 DAY, DURATION 1 DAY
     Route: 048
     Dates: start: 202111, end: 202111
  2. RIVOTRIL [Suspect]
     Active Substance: CLONAZEPAM
     Dosage: UNIT DOSE: 7.5 MG, FREQUENCY TIME 1 DAY, DURATION 1 DAY
     Route: 048
     Dates: start: 202111, end: 202111
  3. AKINETON [Suspect]
     Active Substance: BIPERIDEN HYDROCHLORIDE
     Dosage: UNIT DOSE: 16 MG, FREQUENCY TIME 1 DAY, DURATION 1 DAY
     Route: 048
     Dates: start: 202111, end: 202111

REACTIONS (2)
  - Suicide attempt [Unknown]
  - Intentional overdose [Unknown]

NARRATIVE: CASE EVENT DATE: 20211101
